FAERS Safety Report 9790943 (Version 1)
Quarter: 2013Q4

REPORT INFORMATION
  Report Type: Spontaneous
  Country: AU (occurrence: AU)
  Receive Date: 20131231
  Receipt Date: 20131231
  Transmission Date: 20140711
  Serious: Yes (Hospitalization)
  Sender: FDA-Public Use
  Company Number: AU-MYLANLABS-2013S1028854

PATIENT
  Age: 73 Year
  Sex: Male
  Weight: 80 kg

DRUGS (5)
  1. SOTALOL [Suspect]
     Indication: ATRIAL FLUTTER
     Route: 048
  2. SOTALOL [Suspect]
     Indication: ATRIAL FLUTTER
     Dosage: 80MG
     Route: 048
  3. GLICLAZIDE [Concomitant]
     Indication: TYPE 2 DIABETES MELLITUS
     Route: 065
  4. METFORMIN [Concomitant]
     Indication: TYPE 2 DIABETES MELLITUS
     Route: 065
  5. WARFARIN [Concomitant]
     Indication: ATRIAL FLUTTER
     Route: 065

REACTIONS (1)
  - Cardiogenic shock [Recovered/Resolved]
